FAERS Safety Report 4954693-0 (Version None)
Quarter: 2006Q1

REPORT INFORMATION
  Report Type: 
  Country: None (occurrence: None)
  Receive Date: 20060131
  Receipt Date: 20051117
  Transmission Date: 20060701
  Serious: No
  Sender: FDA-Public Use
  Company Number: WAES 0511USA03112

PATIENT
  Age: 43 Year
  Sex: Female

DRUGS (5)
  1. EMEND [Suspect]
     Indication: NAUSEA
     Dosage: SEE IMAGE
     Route: 048
     Dates: start: 20050926, end: 20050926
  2. ALOXI [Concomitant]
  3. COMPAZINE [Concomitant]
  4. DECADRON [Concomitant]
  5. REGULAN [Concomitant]

REACTIONS (2)
  - DEPRESSION [None]
  - FATIGUE [None]
